FAERS Safety Report 12720082 (Version 3)
Quarter: 2016Q3

REPORT INFORMATION
  Report Type: Spontaneous
  Country: US (occurrence: US)
  Receive Date: 20160907
  Receipt Date: 20160929
  Transmission Date: 20161109
  Serious: No
  Sender: FDA-Public Use
  Company Number: US-009507513-1609USA002138

PATIENT
  Sex: Female
  Weight: 73.92 kg

DRUGS (1)
  1. NEXPLANON [Suspect]
     Active Substance: ETONOGESTREL
     Indication: CONTRACEPTION
     Dosage: 68 MG IMPLANT, 1 ROD EVERY 3 YEARS, IN RIGHT ARM
     Route: 059
     Dates: start: 20160225

REACTIONS (3)
  - Migration of implanted drug [Not Recovered/Not Resolved]
  - Fall [Unknown]
  - Implant site bruising [Unknown]

NARRATIVE: CASE EVENT DATE: 2016
